FAERS Safety Report 15289515 (Version 1)
Quarter: 2018Q4

REPORT INFORMATION
  Report Type: Spontaneous
  Country: US (occurrence: US)
  Receive Date: 20180817
  Receipt Date: 20180817
  Transmission Date: 20190204
  Serious: Yes (Other)
  Sender: FDA-Public Use
  Company Number: US-CURIUM PHARMACEUTICALS-198900036

PATIENT
  Sex: Female

DRUGS (1)
  1. SODIUM IODIDE (I 123) (200) [Suspect]
     Active Substance: SODIUM IODIDE I-123
     Indication: IODINE UPTAKE
     Route: 065

REACTIONS (7)
  - Oedema [Unknown]
  - Anaphylactic shock [Unknown]
  - Face oedema [Unknown]
  - Pharyngitis [Unknown]
  - Hypotension [Unknown]
  - Dyspnoea [Unknown]
  - Chest pain [Unknown]

NARRATIVE: CASE EVENT DATE: 19890626
